FAERS Safety Report 7099134-5 (Version None)
Quarter: 2010Q4

REPORT INFORMATION
  Report Type: 
  Country: None (occurrence: None)
  Receive Date: 20101112
  Receipt Date: 20101104
  Transmission Date: 20110411
  Serious: Yes (Other)
  Sender: FDA-Public Use
  Company Number: B0683883A

PATIENT
  Sex: Female

DRUGS (2)
  1. VENTOLIN [Suspect]
     Dosage: 300MCG PER DAY
     Route: 055
     Dates: start: 20101016, end: 20101016
  2. OKI [Concomitant]
     Route: 048

REACTIONS (7)
  - ANAPHYLACTIC REACTION [None]
  - DYSPNOEA [None]
  - EYELID OEDEMA [None]
  - LIP OEDEMA [None]
  - PARAESTHESIA [None]
  - THROAT TIGHTNESS [None]
  - URTICARIA [None]
